FAERS Safety Report 6992304 (Version 3)
Quarter: 2012Q4

REPORT INFORMATION
  Report Type: 
  Country: CA (occurrence: CA)
  Receive Date: 20090512
  Receipt Date: 20121102
  Transmission Date: 20130627
  Serious: Yes (Death, Hospitalization, Other)
  Sender: FDA-Public Use
  Company Number: PHHY2008CA10112

PATIENT
  Sex: Female

DRUGS (1)
  1. SANDOSTATIN LAR [Suspect]
     Indication: CARCINOID TUMOUR
     Dosage: 60 mg, BIW
     Route: 030
     Dates: start: 20050629, end: 20090506

REACTIONS (14)
  - Death [Fatal]
  - Lung neoplasm malignant [Unknown]
  - Pleural effusion [Unknown]
  - Metastases to bone [Unknown]
  - Metastases to liver [Unknown]
  - Pneumonia aspiration [Not Recovered/Not Resolved]
  - Dyspnoea [Unknown]
  - Pericardial effusion [Unknown]
  - General physical health deterioration [Unknown]
  - Weight decreased [Unknown]
  - Tremor [Unknown]
  - Blood pressure increased [Unknown]
  - Fatigue [Recovering/Resolving]
  - Diarrhoea [Recovering/Resolving]
